FAERS Safety Report 24576318 (Version 1)
Quarter: 2024Q4

REPORT INFORMATION
  Report Type: Spontaneous
  Country: DE (occurrence: DE)
  Receive Date: 20241104
  Receipt Date: 20241104
  Transmission Date: 20250114
  Serious: Yes (Life-Threatening, Hospitalization)
  Sender: FRESENIUS KABI
  Company Number: DE-ROCHE-10000111073

PATIENT
  Age: 70 Year
  Sex: Male
  Weight: 75 kg

DRUGS (7)
  1. LEUCOVORIN [Suspect]
     Active Substance: LEUCOVORIN\LEUCOVORIN CALCIUM
     Indication: Gastric cancer
     Dosage: ON 10/OCT/2024 RECEIVED THE LAST DOSE OF LEUCOVORIN (388 MG) PRIOR TO AE.
     Route: 065
     Dates: start: 20241010
  2. OXALIPLATIN [Suspect]
     Active Substance: OXALIPLATIN
     Indication: Gastric cancer
     Dosage: ON 10/OCT/2024 RECEIVED THE LAST DOSE OF OXALIPLATIN (165 MG) PRIOR TO AE.
     Route: 065
     Dates: start: 20241010
  3. ATEZOLIZUMAB [Suspect]
     Active Substance: ATEZOLIZUMAB
     Indication: Gastric cancer
     Dosage: 1200 MG C9-C16. ON 10/OCT/2024 RECEIVED THE LAST DOSE OF ATEZOLIZUMAB (840 MG) PRIOR TO AE.
     Route: 065
     Dates: start: 20241010
  4. DOCETAXEL [Suspect]
     Active Substance: DOCETAXEL
     Indication: Gastric cancer
     Dosage: ON 10/OCT/2024 HE RECEIVED THE LAST DOSE OF DOCETAXEL (97 MG) PRIOR TO AE.
     Route: 065
     Dates: start: 20241010
  5. FLUOROURACIL [Suspect]
     Active Substance: FLUOROURACIL
     Indication: Gastric cancer
     Dosage: ON 11/OCT/2024 RECEIVED THE DOSE OF 5-FU (5050 MG) PRIOR TO AE.
     Route: 065
     Dates: start: 20241010
  6. DEXAMETHASONE [Concomitant]
     Active Substance: DEXAMETHASONE
     Indication: Product used for unknown indication
  7. metformin [METFORMIN] [Concomitant]
     Indication: Product used for unknown indication

REACTIONS (1)
  - Endocrine disorder [Not Recovered/Not Resolved]

NARRATIVE: CASE EVENT DATE: 20241010
